FAERS Safety Report 5350297-9 (Version None)
Quarter: 2007Q2

REPORT INFORMATION
  Report Type: 
  Country: None (occurrence: None)
  Receive Date: 20070607
  Receipt Date: 20070530
  Transmission Date: 20071010
  Serious: Yes (Death, Life-Threatening, Hospitalization, Other)
  Sender: FDA-Public Use
  Company Number: GB-AMGEN-US222523

PATIENT
  Sex: Male
  Weight: 78 kg

DRUGS (6)
  1. ENBREL [Suspect]
     Indication: RHEUMATOID ARTHRITIS
     Route: 058
     Dates: start: 20040517, end: 20070508
  2. AMOXICILLIN [Concomitant]
     Indication: BRONCHIECTASIS
     Dosage: DAY 6 OF 14 DAY COURSE
  3. TIOTROPIUM BROMIDE [Concomitant]
     Dosage: UNKNOWN
  4. SERETIDE [Concomitant]
     Dosage: UNKOWN
  5. DICLOFENAC [Concomitant]
     Dosage: 75 MG
  6. ACETAMINOPHEN W/ CODEINE [Concomitant]
     Dosage: UNKNOWN

REACTIONS (3)
  - DEATH [None]
  - PLATELET COUNT DECREASED [None]
  - SEPTIC ARTHRITIS STAPHYLOCOCCAL [None]
